FAERS Safety Report 4380284-9 (Version None)
Quarter: 2004Q2

REPORT INFORMATION
  Report Type: 
  Country: None (occurrence: None)
  Receive Date: 20040616
  Receipt Date: 20040616
  Transmission Date: 20050107
  Serious: Yes (Other)
  Sender: FDA-Public Use
  Company Number: None

PATIENT
  Age: 72 Year
  Sex: Female
  Weight: 86.1834 kg

DRUGS (9)
  1. ALBUTEROL [Suspect]
     Indication: ASTHMA
     Dosage: USE 1 VIAL INNEB EVERY 2H AS NEEDED 3DOSES TOTAL
     Dates: start: 20040608
  2. ALBUTEROL [Suspect]
     Indication: CHRONIC OBSTRUCTIVE AIRWAYS DISEASE
     Dosage: USE 1 VIAL INNEB EVERY 2H AS NEEDED 3DOSES TOTAL
     Dates: start: 20040608
  3. LASIX [Concomitant]
  4. GLUCOTROL XL [Concomitant]
  5. NEXIUM [Concomitant]
  6. CELEBREX [Concomitant]
  7. LORTAB [Concomitant]
  8. XANAX [Concomitant]
  9. MULTIVITAMIN [Concomitant]

REACTIONS (4)
  - CHEST DISCOMFORT [None]
  - FEELING ABNORMAL [None]
  - PHARMACEUTICAL PRODUCT COMPLAINT [None]
  - THROAT IRRITATION [None]
